FAERS Safety Report 19301801 (Version 1)
Quarter: 2021Q2

REPORT INFORMATION
  Report Type: Spontaneous
  Country: US (occurrence: US)
  Receive Date: 20210524
  Receipt Date: 20210524
  Transmission Date: 20210717
  Serious: Yes (Other)
  Sender: FDA-Public Use
  Company Number: US-PURDUE-USA-2020-0176328

PATIENT

DRUGS (1)
  1. OXYCONTIN [Suspect]
     Active Substance: OXYCODONE HYDROCHLORIDE
     Indication: PAIN
     Dosage: UNK
     Route: 048

REACTIONS (10)
  - Eating disorder [Unknown]
  - Drug dependence [Unknown]
  - Dysstasia [Unknown]
  - Obstruction [Unknown]
  - Pain [Unknown]
  - Spinal disorder [Unknown]
  - Discomfort [Unknown]
  - Drug withdrawal syndrome [Unknown]
  - Ileus paralytic [Unknown]
  - Dyspepsia [Unknown]
